FAERS Safety Report 13466017 (Version 3)
Quarter: 2017Q2

REPORT INFORMATION
  Report Type: Spontaneous
  Country: US (occurrence: US)
  Receive Date: 20170421
  Receipt Date: 20170629
  Transmission Date: 20170830
  Serious: No
  Sender: FDA-Public Use
  Company Number: US-PFIZER INC-2017125505

PATIENT
  Age: 69 Year
  Sex: Male
  Weight: 108.8 kg

DRUGS (15)
  1. LYRICA [Suspect]
     Active Substance: PREGABALIN
     Indication: NEURALGIA
     Dosage: 75 MG, 2X/DAY
     Route: 048
     Dates: start: 20170522
  2. KLONOPIN [Concomitant]
     Active Substance: CLONAZEPAM
     Dosage: 2 MG, AS NEEDED (ONE PO Q AM AND Q PM/ PRN 1 EXTRA TAB)
     Route: 048
  3. LYRICA [Suspect]
     Active Substance: PREGABALIN
     Indication: BACK PAIN
  4. LYRICA [Suspect]
     Active Substance: PREGABALIN
     Indication: NEUROPATHY PERIPHERAL
     Dosage: 75 MG, 2X/DAY
     Route: 048
     Dates: start: 20170316
  5. KLONOPIN [Concomitant]
     Active Substance: CLONAZEPAM
     Dosage: 2 MG, 2X/DAY (ONE PO Q AM AND Q PM)
     Route: 048
  6. PROZAC [Concomitant]
     Active Substance: FLUOXETINE HYDROCHLORIDE
     Dosage: 20 MG, 3X/DAY
     Route: 048
  7. LYRICA [Suspect]
     Active Substance: PREGABALIN
     Indication: DIABETIC NEUROPATHY
  8. LIPITOR [Concomitant]
     Active Substance: ATORVASTATIN CALCIUM
     Dosage: 40 MG, 1X/DAY
     Route: 048
  9. LYRICA [Suspect]
     Active Substance: PREGABALIN
     Indication: NEUROPATHY PERIPHERAL
     Dosage: 75 MG, 2X/DAY
     Dates: start: 201703
  10. ECONAZOLE NITRATE. [Concomitant]
     Active Substance: ECONAZOLE NITRATE
     Dosage: 1 %, DAILY
     Route: 061
  11. PRINIVIL [Concomitant]
     Active Substance: LISINOPRIL
     Dosage: 5 MG, 1X/DAY
     Route: 048
  12. MYCOSTATIN [Concomitant]
     Active Substance: NYSTATIN
     Indication: RASH
     Dosage: UNK (2-3 TIMES EVERY DAYRED RASH AREA)
     Route: 061
  13. MYCOSTATIN [Concomitant]
     Active Substance: NYSTATIN
     Dosage: UNK
  14. NORVASC [Concomitant]
     Active Substance: AMLODIPINE BESYLATE
     Dosage: 5 MG, 1X/DAY
     Route: 048
  15. ZESTRIL [Concomitant]
     Active Substance: LISINOPRIL
     Dosage: 5 MG, 1X/DAY
     Route: 048

REACTIONS (4)
  - Drug ineffective [Not Recovered/Not Resolved]
  - Expired product administered [Unknown]
  - Weight increased [Unknown]
  - Somnolence [Unknown]
